FAERS Safety Report 12966124 (Version 1)
Quarter: 2016Q4

REPORT INFORMATION
  Report Type: Spontaneous
  Country: JP (occurrence: JP)
  Receive Date: 20161122
  Receipt Date: 20161122
  Transmission Date: 20170207
  Serious: Yes (Hospitalization)
  Sender: FDA-Public Use
  Company Number: JP-ALLERGAN-1677111US

PATIENT
  Sex: Male

DRUGS (8)
  1. ARIPIPRAZOLE. [Suspect]
     Active Substance: ARIPIPRAZOLE
     Dosage: 60 MG, UNKNOWN
     Route: 048
     Dates: start: 20160819, end: 20160819
  2. RISPERDAL [Concomitant]
     Active Substance: RISPERIDONE
     Indication: PRODUCT USED FOR UNKNOWN INDICATION
     Dosage: 2 MG, UNKNOWN
     Route: 065
  3. ARIPIPRAZOLE. [Suspect]
     Active Substance: ARIPIPRAZOLE
     Indication: PRODUCT USED FOR UNKNOWN INDICATION
     Dosage: 18 MG, UNKNOWN
     Route: 048
     Dates: start: 2014, end: 2016
  4. ARIPIPRAZOLE. [Suspect]
     Active Substance: ARIPIPRAZOLE
     Dosage: 24 MG, UNKNOWN
     Route: 048
     Dates: start: 2016, end: 2016
  5. REFLEX [Concomitant]
     Active Substance: MIRTAZAPINE
     Indication: PRODUCT USED FOR UNKNOWN INDICATION
     Dosage: UNK UNK, UNKNOWN
     Route: 065
  6. ASENAPINE MALEATE - BP [Suspect]
     Active Substance: ASENAPINE MALEATE
     Indication: PRODUCT USED FOR UNKNOWN INDICATION
     Dosage: UNK, UNKNOWN
     Route: 065
  7. ARIPIPRAZOLE. [Suspect]
     Active Substance: ARIPIPRAZOLE
     Dosage: 12 MG, UNKNOWN
     Route: 048
     Dates: start: 2016, end: 2016
  8. ARIPIPRAZOLE. [Suspect]
     Active Substance: ARIPIPRAZOLE
     Dosage: UNK UNK, UNKNOWN
     Route: 048
     Dates: start: 2016, end: 2016

REACTIONS (5)
  - Dyspnoea [Not Recovered/Not Resolved]
  - Aggression [Not Recovered/Not Resolved]
  - Depressed level of consciousness [Not Recovered/Not Resolved]
  - Muscle rigidity [Not Recovered/Not Resolved]
  - Off label use [Unknown]

NARRATIVE: CASE EVENT DATE: 20160820
